FAERS Safety Report 18977781 (Version 12)
Quarter: 2024Q3

REPORT INFORMATION
  Report Type: Spontaneous
  Country: US (occurrence: US)
  Receive Date: 20210306
  Receipt Date: 20240909
  Transmission Date: 20241017
  Serious: Yes (Hospitalization, Disabling, Other)
  Sender: ORGANON
  Company Number: US-ORGANON-O2103USA000525

PATIENT
  Sex: Female
  Weight: 92.98 kg

DRUGS (2)
  1. SINGULAIR [Suspect]
     Active Substance: MONTELUKAST SODIUM
     Indication: Hypersensitivity
     Dosage: 1 DOSAGE FORM, HS (TOOK 1 TABLET, PO, QHS (10 MG BY MOUTH NIGHTLY))
     Route: 048
     Dates: start: 2008, end: 20210415
  2. SINGULAIR [Suspect]
     Active Substance: MONTELUKAST SODIUM
     Indication: Asthma

REACTIONS (93)
  - Suicide attempt [Unknown]
  - Suicide attempt [Unknown]
  - Suicidal ideation [Recovered/Resolved]
  - Knee arthroplasty [Unknown]
  - Post-traumatic stress disorder [Unknown]
  - Psychotic disorder [Unknown]
  - Psychiatric symptom [Unknown]
  - Neuropsychological symptoms [Not Recovered/Not Resolved]
  - Self-injurious ideation [Recovered/Resolved]
  - Intentional self-injury [Unknown]
  - Tic [Recovered/Resolved]
  - Dysphemia [Not Recovered/Not Resolved]
  - Tremor [Recovered/Resolved]
  - Depression [Recovering/Resolving]
  - Limb injury [Unknown]
  - Hallucination, auditory [Unknown]
  - Seizure [Recovered/Resolved]
  - Hallucination, visual [Unknown]
  - Hyperthyroidism [Unknown]
  - Neuropathy peripheral [Unknown]
  - Claustrophobia [Unknown]
  - Multiple sclerosis [Recovering/Resolving]
  - Epilepsy [Unknown]
  - Pneumocystis jirovecii pneumonia [Unknown]
  - Nephrolithiasis [Recovered/Resolved]
  - Major depression [Recovered/Resolved]
  - Deafness [Unknown]
  - Back pain [Not Recovered/Not Resolved]
  - Irritability [Unknown]
  - Anxiety [Recovered/Resolved]
  - Paranoia [Unknown]
  - Panic attack [Unknown]
  - Nightmare [Unknown]
  - Homicidal ideation [Unknown]
  - Asthenia [Unknown]
  - Fatigue [Unknown]
  - Personality disorder [Unknown]
  - Rhinitis allergic [Unknown]
  - Migraine [Unknown]
  - Self esteem decreased [Unknown]
  - Feelings of worthlessness [Unknown]
  - Feeling of despair [Unknown]
  - Pain [Unknown]
  - Insomnia [Unknown]
  - Vision blurred [Unknown]
  - Muscle twitching [Unknown]
  - Neck pain [Unknown]
  - Memory impairment [Not Recovered/Not Resolved]
  - Hypoaesthesia [Unknown]
  - Balance disorder [Unknown]
  - Headache [Recovering/Resolving]
  - Overweight [Unknown]
  - Conjunctivitis allergic [Unknown]
  - Gastrooesophageal reflux disease [Unknown]
  - Chronic sinusitis [Unknown]
  - Chest discomfort [Unknown]
  - Pruritus [Unknown]
  - Nasal congestion [Unknown]
  - Asthma [Recovering/Resolving]
  - Lipoma [Unknown]
  - Hypoalbuminaemia [Unknown]
  - Arthralgia [Unknown]
  - Spinal stenosis [Unknown]
  - Micturition urgency [Unknown]
  - Urine output decreased [Unknown]
  - Urinary incontinence [Unknown]
  - Stress urinary incontinence [Unknown]
  - Haematuria [Unknown]
  - Nocturia [Unknown]
  - Dysuria [Recovered/Resolved]
  - Palpitations [Recovered/Resolved]
  - Gastrooesophageal reflux disease [Not Recovered/Not Resolved]
  - Lipoma [Not Recovered/Not Resolved]
  - Ligament sprain [Not Recovered/Not Resolved]
  - Abdominal pain upper [Not Recovered/Not Resolved]
  - Paraesthesia [Not Recovered/Not Resolved]
  - Anaemia [Recovered/Resolved]
  - Drooling [Unknown]
  - Otorrhoea [Unknown]
  - Ear pain [Unknown]
  - Swelling face [Unknown]
  - Stomatitis [Unknown]
  - Epistaxis [Unknown]
  - Sinus pain [Unknown]
  - Oropharyngeal pain [Unknown]
  - Tinnitus [Unknown]
  - Pharyngeal erythema [Unknown]
  - Dysphagia [Unknown]
  - Dysphonia [Unknown]
  - Myalgia [Unknown]
  - Oedema mucosal [Unknown]
  - Rhinorrhoea [Unknown]
  - Oropharyngeal oedema [Unknown]

NARRATIVE: CASE EVENT DATE: 20080101
